FAERS Safety Report 7138569-9 (Version None)
Quarter: 2010Q4

REPORT INFORMATION
  Report Type: 
  Country: None (occurrence: None)
  Receive Date: 20101206
  Receipt Date: 20101126
  Transmission Date: 20110411
  Serious: Yes (Death)
  Sender: FDA-Public Use
  Company Number: PH-BAXTER-2010BH029126

PATIENT
  Age: 60 Year
  Sex: Male

DRUGS (2)
  1. DIANEAL [Suspect]
     Indication: PERITONEAL DIALYSIS
     Route: 033
     Dates: start: 20100619
  2. DIANEAL [Suspect]
     Route: 033
     Dates: start: 20100619

REACTIONS (3)
  - ANAEMIA [None]
  - CARDIO-RESPIRATORY ARREST [None]
  - RENAL FAILURE CHRONIC [None]
